FAERS Safety Report 17511119 (Version 1)
Quarter: 2020Q1

REPORT INFORMATION
  Report Type: Spontaneous
  Country: US (occurrence: US)
  Receive Date: 20200226
  Receipt Date: 20200226
  Transmission Date: 20200409
  Serious: Yes (Life-Threatening, Hospitalization, Other)
  Sender: FDA-Public Use
  Company Number: None

PATIENT

DRUGS (3)
  1. NICOTINE VAPE JUICE [Suspect]
     Active Substance: NICOTINE\PROPYLENE GLYCOL
  2. THC VAPE JUICE [Suspect]
     Active Substance: .DELTA.8-TETRAHYDROCANNABINOL\HERBALS
  3. CLOUD NURDZ PEACH BLUE RASPBERRY (RAZZ) 6MG/100ML VAPE JUICE [Suspect]
     Active Substance: NICOTINE\PROPYLENE GLYCOL

REACTIONS (14)
  - Pyrexia [None]
  - Respiratory failure [None]
  - Dyspnoea [None]
  - Diarrhoea [None]
  - Vomiting [None]
  - Fatigue [None]
  - Cough [None]
  - Hypoxia [None]
  - Decreased appetite [None]
  - Pneumonia [None]
  - Chest pain [None]
  - Chills [None]
  - Nausea [None]
  - Pulmonary congestion [None]
